FAERS Safety Report 10424386 (Version 2)
Quarter: 2014Q3

REPORT INFORMATION
  Report Type: Spontaneous
  Country: US (occurrence: US)
  Receive Date: 20140902
  Receipt Date: 20140924
  Transmission Date: 20150326
  Serious: No
  Sender: FDA-Public Use
  Company Number: US-PFIZER INC-2014241074

PATIENT
  Sex: Female

DRUGS (1)
  1. LYRICA [Suspect]
     Active Substance: PREGABALIN
     Indication: FIBROMYALGIA
     Dosage: 100 MG, UNK
     Dates: start: 1998

REACTIONS (4)
  - Muscle spasms [Unknown]
  - Vocal cord disorder [Unknown]
  - Headache [Unknown]
  - Tinnitus [Unknown]
